FAERS Safety Report 6283783-8 (Version None)
Quarter: 2009Q3

REPORT INFORMATION
  Report Type: 
  Country: None (occurrence: None)
  Receive Date: 20090724
  Receipt Date: 20090722
  Transmission Date: 20100115
  Serious: Yes (Life-Threatening)
  Sender: FDA-Public Use
  Company Number: US-ASTRAZENECA-2009UW20914

PATIENT
  Age: 53 Year
  Sex: Female

DRUGS (3)
  1. SYMBICORT [Suspect]
     Route: 055
  2. METFORMIN HCL [Concomitant]
  3. DIOVAN [Concomitant]

REACTIONS (12)
  - ANXIETY [None]
  - CHILLS [None]
  - COUGH [None]
  - DIZZINESS [None]
  - DYSPNOEA [None]
  - FEELING COLD [None]
  - HYPERTENSIVE CRISIS [None]
  - INSOMNIA [None]
  - MUCOUS MEMBRANE DISORDER [None]
  - NAUSEA [None]
  - PHOTOPHOBIA [None]
  - RHINORRHOEA [None]
